FAERS Safety Report 8955903 (Version 2)
Quarter: 2013Q2

REPORT INFORMATION
  Report Type: Report from Study
  Country: MX (occurrence: MX)
  Receive Date: 20121210
  Receipt Date: 20130418
  Transmission Date: 20140414
  Serious: Yes (Hospitalization, Other)
  Sender: FDA-Public Use
  Company Number: PHHY2011MX105288

PATIENT
  Age: 55 Year
  Sex: Female

DRUGS (4)
  1. CO-DIOVAN [Suspect]
     Indication: HYPERTENSION
     Dosage: 1 DF, (160/25 MG ONE TABLET DAILY)
     Dates: start: 200912
  2. INSULIN [Concomitant]
     Indication: DIABETES MELLITUS
     Dosage: 23 UL AT MORNING
     Dates: start: 201203
  3. INSULIN [Concomitant]
     Dosage: 14 UL AT NIGHT
     Dates: start: 201203
  4. METFORMIN [Concomitant]
     Indication: DIABETES MELLITUS
     Dosage: 2 DFDAILY
     Dates: start: 201203

REACTIONS (7)
  - Blood glucose increased [Recovered/Resolved]
  - Typhoid fever [Recovered/Resolved]
  - Blood pressure increased [Recovered/Resolved]
  - Depression [Recovered/Resolved]
  - Nightmare [Recovered/Resolved]
  - Hunger [Unknown]
  - Dry mouth [Unknown]
